FAERS Safety Report 5133653-3 (Version None)
Quarter: 2006Q4

REPORT INFORMATION
  Report Type: 
  Country: None (occurrence: None)
  Receive Date: 20061024
  Receipt Date: 20060526
  Transmission Date: 20070319
  Serious: Yes (Hospitalization)
  Sender: FDA-Public Use
  Company Number: PHNU2006DE02101

PATIENT
  Sex: Female
  Weight: 80 kg

DRUGS (14)
  1. LOMIR SRO [Suspect]
     Indication: HYPERTENSION
     Dosage: UNK, UNK
     Route: 048
     Dates: start: 19940101, end: 20051201
  2. LOMIR SRO [Suspect]
     Dosage: 5 MG/D
     Route: 048
     Dates: start: 20060518
  3. LISINOPRIL W/HYDROCHLOROTHIAZIDE [Suspect]
     Indication: HYPERTENSION
     Dosage: UNK, UNK
     Route: 048
     Dates: start: 20060401
  4. ASPIRIN [Suspect]
     Indication: CORONARY ARTERY DISEASE
     Dosage: 100 MG/D
     Route: 048
     Dates: start: 19860101
  5. TORSEMIDE [Suspect]
     Indication: HYPERTENSION
     Dosage: 5 MG/D
     Route: 048
     Dates: start: 20060401
  6. MOXONIDINE [Suspect]
     Indication: HYPERTENSION
     Dosage: 0.3 MG/D
     Route: 048
     Dates: start: 20041201
  7. BISOPROLOL FUMARATE [Suspect]
     Dosage: 5 MG/D
     Route: 048
     Dates: start: 19990101
  8. CALCIUM WITH VITAMIN D [Suspect]
     Indication: OSTEOPOROSIS
     Dosage: 500-1000 MG CA, 400-800 IU VIT D/D
     Route: 048
  9. OPIPRAMOL [Suspect]
     Indication: DEPRESSION
     Dosage: 50 MG/D
     Route: 048
     Dates: start: 20051201
  10. STRONTIUM RANELATE [Suspect]
     Indication: OSTEOPOROSIS
     Dosage: 2 G/D
     Route: 048
     Dates: start: 20050601
  11. LACTULOSE [Suspect]
     Indication: CONSTIPATION
     Dosage: UNK, PRN
     Route: 048
     Dates: start: 20060501
  12. LISINOPRIL [Suspect]
     Indication: HYPERTENSION
     Dosage: UNK, UNK
     Route: 048
     Dates: start: 20060401
  13. PALLADON [Suspect]
     Indication: PAIN
     Dosage: UNK, PRN
     Route: 048
     Dates: start: 20060501
  14. PANTOZOL [Suspect]
     Indication: REFLUX OESOPHAGITIS
     Dosage: 20 MG, PRN
     Route: 048
     Dates: start: 19990101

REACTIONS (5)
  - CEREBROVASCULAR ACCIDENT [None]
  - DRUG INTERACTION [None]
  - ERYTHEMA [None]
  - FLUSHING [None]
  - SKIN BURNING SENSATION [None]
